FAERS Safety Report 12288008 (Version 1)
Quarter: 2016Q2

REPORT INFORMATION
  Report Type: Spontaneous
  Country: US (occurrence: US)
  Receive Date: 20160420
  Receipt Date: 20160420
  Transmission Date: 20160815
  Serious: No
  Sender: FDA-Public Use
  Company Number: US-ELI_LILLY_AND_COMPANY-US201603010429

PATIENT
  Sex: Female

DRUGS (2)
  1. HUMALOG [Suspect]
     Active Substance: INSULIN LISPRO
     Indication: TYPE 2 DIABETES MELLITUS
     Dosage: UNK, PRN
     Route: 065
     Dates: start: 20160317, end: 20160319
  2. HUMALOG MIX75/25 [Suspect]
     Active Substance: INSULIN LISPRO
     Indication: TYPE 2 DIABETES MELLITUS
     Dosage: 120 U, OTHER
     Route: 065
     Dates: start: 201509, end: 201511

REACTIONS (8)
  - Nausea [Recovering/Resolving]
  - Injection site infection [Recovering/Resolving]
  - Hyperglycaemia [Recovered/Resolved]
  - Drug ineffective [Recovered/Resolved]
  - Injection site bruising [Recovering/Resolving]
  - Injection site haemorrhage [Recovering/Resolving]
  - Weight increased [Recovering/Resolving]
  - Injection site scar [Recovering/Resolving]

NARRATIVE: CASE EVENT DATE: 201509
